FAERS Safety Report 15932048 (Version 3)
Quarter: 2020Q3

REPORT INFORMATION
  Report Type: Spontaneous
  Country: US (occurrence: US)
  Receive Date: 20190207
  Receipt Date: 20200929
  Transmission Date: 20201102
  Serious: Yes (Other)
  Sender: FDA-Public Use
  Company Number: US-ASTRAZENECA-2018SF13687

PATIENT
  Age: 807 Month
  Sex: Male
  Weight: 73 kg

DRUGS (32)
  1. LABETALOL [Concomitant]
     Active Substance: LABETALOL\LABETALOL HYDROCHLORIDE
  2. CIPROFLOXACIN. [Concomitant]
     Active Substance: CIPROFLOXACIN
     Indication: INFECTION
  3. ASPIRIN. [Concomitant]
     Active Substance: ASPIRIN
  4. FERROUS SULFATE. [Concomitant]
     Active Substance: FERROUS SULFATE
  5. TRAMADOL. [Concomitant]
     Active Substance: TRAMADOL
  6. PROAIR HFA [Concomitant]
     Active Substance: ALBUTEROL SULFATE
  7. NEXIUM [Suspect]
     Active Substance: ESOMEPRAZOLE MAGNESIUM
     Indication: GASTROOESOPHAGEAL REFLUX DISEASE
     Route: 048
     Dates: start: 201204, end: 201604
  8. ANDROGEL [Concomitant]
     Active Substance: TESTOSTERONE
  9. IBUPROFEN. [Concomitant]
     Active Substance: IBUPROFEN
  10. METHYLPREDNISOLONE. [Concomitant]
     Active Substance: METHYLPREDNISOLONE
  11. PRILOSEC [Suspect]
     Active Substance: OMEPRAZOLE MAGNESIUM
     Indication: GASTROOESOPHAGEAL REFLUX DISEASE
     Route: 048
     Dates: start: 20110415, end: 20160418
  12. OXYCODONE [Concomitant]
     Active Substance: OXYCODONE
  13. TEMAZEPAM. [Concomitant]
     Active Substance: TEMAZEPAM
  14. PATANASE [Concomitant]
     Active Substance: OLOPATADINE HYDROCHLORIDE
  15. NEXIUM [Suspect]
     Active Substance: ESOMEPRAZOLE MAGNESIUM
     Indication: GASTROOESOPHAGEAL REFLUX DISEASE
     Route: 048
     Dates: start: 20120415, end: 20160416
  16. NIFEDIPINE. [Concomitant]
     Active Substance: NIFEDIPINE
  17. LORAZEPAM. [Concomitant]
     Active Substance: LORAZEPAM
  18. FLUOXETINE [Concomitant]
     Active Substance: FLUOXETINE HYDROCHLORIDE
  19. LITHIUM CARBONATE. [Concomitant]
     Active Substance: LITHIUM CARBONATE
  20. RANITIDINE. [Concomitant]
     Active Substance: RANITIDINE
  21. KETOCONAZOLE. [Concomitant]
     Active Substance: KETOCONAZOLE
  22. DOXEPIN [Concomitant]
     Active Substance: DOXEPIN
  23. LORAZEPAM. [Concomitant]
     Active Substance: LORAZEPAM
  24. AMOXICILLIN. [Concomitant]
     Active Substance: AMOXICILLIN
  25. ALPRAZOLAM. [Concomitant]
     Active Substance: ALPRAZOLAM
  26. LUNESTA [Concomitant]
     Active Substance: ESZOPICLONE
  27. QUALAQUIN [Concomitant]
     Active Substance: QUININE SULFATE
  28. FLUTICASONE. [Concomitant]
     Active Substance: FLUTICASONE
  29. PRILOSEC [Suspect]
     Active Substance: OMEPRAZOLE MAGNESIUM
     Indication: GASTROOESOPHAGEAL REFLUX DISEASE
     Route: 048
     Dates: start: 201104, end: 201604
  30. LATANOPROST. [Concomitant]
     Active Substance: LATANOPROST
  31. ATORVASTATIN [Concomitant]
     Active Substance: ATORVASTATIN
     Indication: BLOOD CHOLESTEROL
  32. ZOLPIDEM [Concomitant]
     Active Substance: ZOLPIDEM TARTRATE

REACTIONS (3)
  - Gastrooesophageal reflux disease [Not Recovered/Not Resolved]
  - Renal injury [Unknown]
  - Chronic kidney disease [Not Recovered/Not Resolved]

NARRATIVE: CASE EVENT DATE: 201611
